FAERS Safety Report 7644464-9 (Version None)
Quarter: 2011Q3

REPORT INFORMATION
  Report Type: 
  Country: None (occurrence: None)
  Receive Date: 20110729
  Receipt Date: 20110720
  Transmission Date: 20111222
  Serious: Yes (Hospitalization)
  Sender: FDA-Public Use
  Company Number: CA-ROCHE-791535

PATIENT
  Sex: Female
  Weight: 60.3 kg

DRUGS (2)
  1. METHOTREXATE [Concomitant]
  2. TOCILIZUMAB [Suspect]
     Indication: RHEUMATOID ARTHRITIS
     Route: 042
     Dates: start: 20110406, end: 20110531

REACTIONS (1)
  - HIP ARTHROPLASTY [None]
